FAERS Safety Report 17817179 (Version 1)
Quarter: 2020Q2

REPORT INFORMATION
  Report Type: Spontaneous
  Country: FR (occurrence: FR)
  Receive Date: 20200522
  Receipt Date: 20200522
  Transmission Date: 20200714
  Serious: Yes (Hospitalization)
  Sender: FDA-Public Use
  Company Number: FR-TEVA-2020-FR-1237235

PATIENT
  Age: 41 Year
  Sex: Male
  Weight: 75 kg

DRUGS (4)
  1. PURINETHOL [Suspect]
     Active Substance: MERCAPTOPURINE
     Indication: ACUTE LYMPHOCYTIC LEUKAEMIA
     Dosage: UNSPECIFIED
     Route: 048
     Dates: start: 20190810, end: 20190815
  2. ZELITREX 500 MG, COMPRIME ENROBE [Suspect]
     Active Substance: VALACYCLOVIR HYDROCHLORIDE
     Indication: PROPHYLAXIS
     Route: 048
     Dates: start: 20190813, end: 20190819
  3. METHOTREXATE. [Suspect]
     Active Substance: METHOTREXATE
     Indication: ACUTE LYMPHOCYTIC LEUKAEMIA
     Route: 037
     Dates: start: 20190810, end: 20190816
  4. METHOTREXATE. [Suspect]
     Active Substance: METHOTREXATE
     Dosage: 900 MG THEN 8100 MG
     Route: 042
     Dates: start: 20190810, end: 20190811

REACTIONS (4)
  - Mucosal inflammation [Recovered/Resolved]
  - Dermatitis exfoliative generalised [Recovered/Resolved]
  - Haematemesis [Recovered/Resolved]
  - Pyrexia [Recovered/Resolved]

NARRATIVE: CASE EVENT DATE: 20190812
